FAERS Safety Report 6753318-1 (Version None)
Quarter: 2010Q2

REPORT INFORMATION
  Report Type: 
  Country: None (occurrence: None)
  Receive Date: 20100520
  Receipt Date: 20091005
  Transmission Date: 20101027
  Serious: Yes (Other)
  Sender: FDA-Public Use
  Company Number: 2009279225

PATIENT
  Age: 64 Year
  Sex: Female
  Weight: 95 kg

DRUGS (7)
  1. PROVERA [Suspect]
     Indication: HORMONE REPLACEMENT THERAPY
     Dosage: ORAL
     Route: 048
     Dates: start: 19970101, end: 20010101
  2. PREMARIN [Suspect]
     Indication: HORMONE REPLACEMENT THERAPY
     Dates: start: 19970101, end: 20010101
  3. BECLOMETHASONE DIPROPIONATE [Concomitant]
  4. ALBUTEROL [Concomitant]
  5. VERAPAMIL HYDROCHLORIDE [Concomitant]
  6. INSULIN (INSULIN) [Concomitant]
  7. PSEUDOEPHEDRINE HCL [Concomitant]

REACTIONS (1)
  - BREAST CANCER FEMALE [None]
